FAERS Safety Report 9834478 (Version 1)
Quarter: 2014Q1

REPORT INFORMATION
  Report Type: Report from Study
  Country: CO (occurrence: CO)
  Receive Date: 20140122
  Receipt Date: 20140122
  Transmission Date: 20141002
  Serious: Yes (Hospitalization, Other)
  Sender: FDA-Public Use
  Company Number: PHHY2014CO005820

PATIENT
  Sex: Female

DRUGS (6)
  1. SANDOSTATIN LAR [Suspect]
     Indication: ACROMEGALY
  2. CALCIUM CITRATE + D [Concomitant]
     Indication: HYPERCALCAEMIA
  3. CALCITRIOL [Concomitant]
     Indication: HYPERCALCAEMIA
  4. NIFEDIPINE [Concomitant]
  5. METOPROLOL [Concomitant]
  6. LOSARTAN [Concomitant]

REACTIONS (5)
  - Hypercalcaemia [Not Recovered/Not Resolved]
  - Hypertensive crisis [Recovering/Resolving]
  - Hyperhidrosis [Unknown]
  - General physical condition abnormal [Unknown]
  - Asthenia [Unknown]
